FAERS Safety Report 5815233-7 (Version None)
Quarter: 2008Q3

REPORT INFORMATION
  Report Type: 
  Country: None (occurrence: None)
  Receive Date: 20080718
  Receipt Date: 20080711
  Transmission Date: 20090109
  Serious: Yes (Death, Life-Threatening, Hospitalization, Other)
  Sender: FDA-Public Use
  Company Number: CA-BOEHRINGER INGELHEIM GMBH, GERMANY-2008-BP-10813RO

PATIENT
  Age: 31 Year
  Sex: Male

DRUGS (14)
  1. PREDNISONE TAB [Suspect]
     Indication: IMMUNOSUPPRESSION
  2. PREDNISONE TAB [Suspect]
  3. MYCOPHENOLIC ACID [Suspect]
     Indication: IMMUNOSUPPRESSION
  4. CYCLOSPORINE [Suspect]
     Indication: IMMUNOSUPPRESSION
  5. TELMISARTAN [Concomitant]
  6. VALGANCICLOVIR HCL [Concomitant]
     Indication: CYTOMEGALOVIRUS COLITIS
  7. VORICONAZOLE [Concomitant]
     Indication: FUNGAL INFECTION
  8. RISPERIDONE [Concomitant]
     Indication: NERVOUS SYSTEM DISORDER
  9. THYMOGLOBULIN [Concomitant]
     Indication: KIDNEY TRANSPLANT REJECTION
  10. HIGH DOSE CORTICOSTEROIDS [Concomitant]
     Indication: KIDNEY TRANSPLANT REJECTION
  11. PIPERACILLIN AND TAZOBACTAM [Concomitant]
     Indication: PSEUDOMONAS INFECTION
  12. ITRACONAZOLE [Concomitant]
     Indication: ANTIFUNGAL PROPHYLAXIS
  13. CIPROFLOXACIN [Concomitant]
     Indication: RENAL IMPAIRMENT
  14. TACROLIMUS [Concomitant]
     Indication: RENAL IMPAIRMENT

REACTIONS (10)
  - ASPERGILLOSIS [None]
  - CANDIDIASIS [None]
  - CYTOMEGALOVIRUS COLITIS [None]
  - FUNGAL INFECTION [None]
  - HYDROCEPHALUS [None]
  - KIDNEY TRANSPLANT REJECTION [None]
  - NERVOUS SYSTEM DISORDER [None]
  - PSEUDOMONAS INFECTION [None]
  - PYREXIA [None]
  - RESPIRATORY FAILURE [None]
